FAERS Safety Report 23719244 (Version 1)
Quarter: 2024Q2

REPORT INFORMATION
  Report Type: Spontaneous
  Country: US (occurrence: US)
  Receive Date: 20240408
  Receipt Date: 20240408
  Transmission Date: 20240715
  Serious: No
  Sender: FDA-Public Use
  Company Number: US-Amarin Pharma  Inc-2024AMR000102

PATIENT
  Age: 72 Year
  Sex: Female

DRUGS (1)
  1. VASCEPA [Suspect]
     Active Substance: ICOSAPENT ETHYL
     Indication: Blood cholesterol
     Route: 048

REACTIONS (14)
  - Abdominal discomfort [Unknown]
  - Diarrhoea [Unknown]
  - Abdominal distension [Unknown]
  - Flatulence [Unknown]
  - Abdominal pain upper [Unknown]
  - Eructation [Unknown]
  - Constipation [Unknown]
  - Poor quality product administered [Unknown]
  - Product dose omission issue [Unknown]
  - Product physical issue [Unknown]
  - Product colour issue [Unknown]
  - Product odour abnormal [Unknown]
  - Product taste abnormal [Unknown]
  - Product leakage [Unknown]

NARRATIVE: CASE EVENT DATE: 20240301
